FAERS Safety Report 5199101-2 (Version None)
Quarter: 2006Q4

REPORT INFORMATION
  Report Type: 
  Country: None (occurrence: None)
  Receive Date: 20060919
  Receipt Date: 20060614
  Transmission Date: 20070319
  Serious: Yes (Other)
  Sender: FDA-Public Use
  Company Number: HQWYE270719JUN06

PATIENT
  Sex: Female

DRUGS (1)
  1. ADVIL [Suspect]
     Dosage: 2 LIQUI-GELS ONE TIME, ORAL
     Route: 048
     Dates: start: 20060614, end: 20060614

REACTIONS (1)
  - PHARYNGOLARYNGEAL PAIN [None]
